FAERS Safety Report 4543832-1 (Version None)
Quarter: 2005Q1

REPORT INFORMATION
  Report Type: 
  Country: None (occurrence: None)
  Receive Date: 20050103
  Receipt Date: 20040209
  Transmission Date: 20050727
  Serious: Yes (Other)
  Sender: FDA-Public Use
  Company Number: GXKR2004US00584

PATIENT
  Age: 8 Week
  Sex: Female

DRUGS (4)
  1. SPIRONOLACTONE (NGX)(SPIRONOLACTONE) UNKNOWN [Suspect]
     Indication: LUNG DISORDER
     Dosage: 4 MG/KG, PER DAY, ORAL
     Route: 048
  2. HYIDROCHLOROTHIAZIDE (HYDROCHLOROTHIAZIDE) [Concomitant]
  3. FERROUS SULPHATE (FERROUS SULPHATE) [Concomitant]
  4. DEXAMETHASONE [Concomitant]

REACTIONS (2)
  - NEONATAL DISORDER [None]
  - OVARIAN CYST [None]
